FAERS Safety Report 22208551 (Version 1)
Quarter: 2023Q2

REPORT INFORMATION
  Report Type: Spontaneous
  Country: US (occurrence: US)
  Receive Date: 20230413
  Receipt Date: 20230413
  Transmission Date: 20230721
  Serious: Yes (Hospitalization)
  Sender: FDA-Public Use
  Company Number: US-PARI RESPIRATORY EQUIPMENT, INC.-2023PAR00019

PATIENT
  Age: 0 Year
  Sex: Male

DRUGS (2)
  1. KITABIS PAK [Suspect]
     Active Substance: TOBRAMYCIN
     Indication: Tracheostomy infection
     Dosage: 1 VIAL (300 MG) VIA NEBULIZER, 2X/DAY, 28 DAYS ON 28 DAYS OFF
     Dates: start: 20221020
  2. KITABIS PAK [Suspect]
     Active Substance: TOBRAMYCIN
     Indication: Pseudomonas infection

REACTIONS (5)
  - Gastrostomy [Unknown]
  - Tracheostomy infection [Unknown]
  - Constipation [Not Recovered/Not Resolved]
  - Drug ineffective for unapproved indication [Not Recovered/Not Resolved]
  - Off label use [Not Recovered/Not Resolved]

NARRATIVE: CASE EVENT DATE: 20221020
